FAERS Safety Report 9144344 (Version 2)
Quarter: 2013Q1

REPORT INFORMATION
  Report Type: Report from Study
  Country: US (occurrence: US)
  Receive Date: 20130306
  Receipt Date: 20130328
  Transmission Date: 20140127
  Serious: Yes (Hospitalization)
  Sender: FDA-Public Use
  Company Number: US-US-EMD SERONO, INC.-7196555

PATIENT
  Sex: Female

DRUGS (2)
  1. REBIF [Suspect]
     Indication: MULTIPLE SCLEROSIS
     Route: 058
     Dates: start: 20030827
  2. REBIF [Suspect]
     Route: 058
     Dates: start: 2006

REACTIONS (2)
  - Wound [Recovering/Resolving]
  - Inappropriate schedule of drug administration [Unknown]
